FAERS Safety Report 14826178 (Version 2)
Quarter: 2019Q1

REPORT INFORMATION
  Report Type: Spontaneous
  Country: GB (occurrence: GB)
  Receive Date: 20180430
  Receipt Date: 20190314
  Transmission Date: 20190417
  Serious: Yes (Other)
  Sender: FDA-Public Use
  Company Number: GB-ACCORD-066322

PATIENT
  Age: 47 Year
  Sex: Female

DRUGS (8)
  1. TACROLIMUS. [Suspect]
     Active Substance: TACROLIMUS
     Indication: IMMUNOSUPPRESSANT DRUG THERAPY
  2. VORICONAZOLE. [Interacting]
     Active Substance: VORICONAZOLE
     Indication: PROPHYLAXIS
  3. MEROPENEM. [Interacting]
     Active Substance: MEROPENEM
     Indication: PROPHYLAXIS
  4. COTRIMOXAZOLE [Interacting]
     Active Substance: SULFAMETHOXAZOLE\TRIMETHOPRIM
     Indication: PROPHYLAXIS
  5. PREDNISOLONE. [Concomitant]
     Active Substance: PREDNISOLONE
     Indication: IMMUNOSUPPRESSANT DRUG THERAPY
  6. ACICLOVIR [Interacting]
     Active Substance: ACYCLOVIR
     Indication: PROPHYLAXIS
  7. VANCOMYCIN [Interacting]
     Active Substance: VANCOMYCIN
     Indication: PROPHYLAXIS
  8. AMPHOTERICIN B. [Concomitant]
     Active Substance: AMPHOTERICIN B
     Indication: PROPHYLAXIS

REACTIONS (2)
  - Posterior reversible encephalopathy syndrome [Unknown]
  - Drug interaction [Unknown]
